FAERS Safety Report 5590022-X (Version None)
Quarter: 2008Q1

REPORT INFORMATION
  Report Type: 
  Country: None (occurrence: None)
  Receive Date: 20080114
  Receipt Date: 20070112
  Transmission Date: 20080703
  Serious: No
  Sender: FDA-Public Use
  Company Number: US-ABBOTT-07P-163-0356145-00

PATIENT
  Sex: Male
  Weight: 16.571 kg

DRUGS (3)
  1. OMNICEF [Suspect]
     Indication: CHRONIC SINUSITIS
     Dosage: 125 MG/5 ML
     Route: 048
     Dates: start: 20040101
  2. EXTENDRYL [Concomitant]
     Indication: SINUSITIS
     Dosage: SYRUP
     Route: 048
  3. LACTULOSE [Concomitant]
     Indication: CONSTIPATION
     Dosage: 10 GM/15 ML SYRUP
     Route: 048

REACTIONS (1)
  - TOOTH DISCOLOURATION [None]
